FAERS Safety Report 6773583-4 (Version None)
Quarter: 2010Q2

REPORT INFORMATION
  Report Type: 
  Country: None (occurrence: None)
  Receive Date: 20100614
  Receipt Date: 20100601
  Transmission Date: 20101027
  Serious: Yes (Other)
  Sender: FDA-Public Use
  Company Number: 2010SP027026

PATIENT
  Age: 40 Year
  Sex: Female

DRUGS (4)
  1. SAPHRIS [Suspect]
     Indication: DRUG USE FOR UNKNOWN INDICATION
     Dosage: 5 MG; BID; 10 MG; BID
  2. LITHIUM CARBONATE (CON.) [Concomitant]
  3. BUSPAR (CON.) [Concomitant]
  4. HALDOL (CON.) [Concomitant]

REACTIONS (7)
  - AFFECTIVE DISORDER [None]
  - AGITATION [None]
  - DYSGEUSIA [None]
  - INTENTIONAL SELF-INJURY [None]
  - LACERATION [None]
  - PRODUCT QUALITY ISSUE [None]
  - TREATMENT NONCOMPLIANCE [None]
